FAERS Safety Report 8173832-4 (Version None)
Quarter: 2012Q1

REPORT INFORMATION
  Report Type: 
  Country: None (occurrence: None)
  Receive Date: 20120229
  Receipt Date: 20120217
  Transmission Date: 20120608
  Serious: Yes (Hospitalization, Other)
  Sender: FDA-Public Use
  Company Number: US-ELI_LILLY_AND_COMPANY-US201112007206

PATIENT
  Sex: Female

DRUGS (18)
  1. ATENOLOL [Concomitant]
     Dosage: 25 MG, QD
  2. FERROUS SULFATE TAB [Concomitant]
     Indication: ANAEMIA
  3. IRON [Concomitant]
  4. FISH OIL [Concomitant]
  5. MULTI-VITAMIN [Concomitant]
  6. ASPIRIN [Concomitant]
     Dosage: 81 MG, UNK
  7. ACTONEL [Concomitant]
  8. FORTEO [Suspect]
     Indication: OSTEOPOROSIS
     Dosage: 20 UG, QD
     Route: 065
     Dates: start: 20110601
  9. FORTEO [Suspect]
     Dosage: 20 UG, QD
     Route: 065
  10. FORTEO [Suspect]
     Dosage: 20 UG, QD
  11. CALTRATE                           /00751519/ [Concomitant]
  12. VANCOMYCIN [Concomitant]
  13. FORTEO [Suspect]
     Dosage: 20 UG, QD
     Route: 065
  14. FORTEO [Suspect]
     Dosage: 20 UG, QD
  15. PRILOSEC [Concomitant]
     Dosage: UNK, QD
  16. CALCIUM 600 PLUS VITAMIN D [Concomitant]
  17. PERCOCET [Concomitant]
  18. ANTIBIOTICS [Concomitant]

REACTIONS (2)
  - HIP SURGERY [None]
  - FEMUR FRACTURE [None]
